FAERS Safety Report 15180349 (Version 1)
Quarter: 2018Q3

REPORT INFORMATION
  Report Type: Spontaneous
  Country: US (occurrence: US)
  Receive Date: 20180623
  Receipt Date: 20180623
  Transmission Date: 20181010
  Serious: Yes (Disabling)
  Sender: FDA-Public Use
  Company Number: None

PATIENT
  Age: 33 Year
  Sex: Female
  Weight: 99 kg

DRUGS (4)
  1. FLONASE [Suspect]
     Active Substance: FLUTICASONE PROPIONATE
     Indication: SINUSITIS
     Dosage: 144 PUFF(S);?
     Route: 055
     Dates: start: 20180501, end: 20180506
  2. XARELTO [Concomitant]
     Active Substance: RIVAROXABAN
  3. TYLENOL [Concomitant]
     Active Substance: ACETAMINOPHEN
  4. IRON [Concomitant]
     Active Substance: IRON

REACTIONS (1)
  - Conjunctivitis [None]

NARRATIVE: CASE EVENT DATE: 20180507
